FAERS Safety Report 23796702 (Version 1)
Quarter: 2024Q2

REPORT INFORMATION
  Report Type: Spontaneous
  Country: CN (occurrence: CN)
  Receive Date: 20240430
  Receipt Date: 20240430
  Transmission Date: 20240716
  Serious: Yes (Hospitalization)
  Sender: FDA-Public Use
  Company Number: CN-NOVITIUMPHARMA-2024CNNVP00687

PATIENT
  Age: 56 Year
  Sex: Male

DRUGS (12)
  1. PYRAZINAMIDE [Suspect]
     Active Substance: PYRAZINAMIDE
     Indication: Pulmonary tuberculosis
  2. ISONIAZID [Concomitant]
     Active Substance: ISONIAZID
     Indication: Pulmonary tuberculosis
  3. RIFAMPIN [Concomitant]
     Active Substance: RIFAMPIN
     Indication: Pulmonary tuberculosis
  4. ETHAMBUTOL [Concomitant]
     Active Substance: ETHAMBUTOL HYDROCHLORIDE
     Indication: Pulmonary tuberculosis
  5. MOXIFLOXACIN [Concomitant]
     Active Substance: MOXIFLOXACIN
     Indication: Pneumonia
  6. ACETAMINOPHEN [Concomitant]
     Active Substance: ACETAMINOPHEN
     Indication: Pyrexia
  7. AMBROXOL [Concomitant]
     Active Substance: AMBROXOL
     Indication: Pulmonary tuberculosis
  8. FUDOSTEINE [Concomitant]
     Active Substance: FUDOSTEINE
     Indication: Product used for unknown indication
  9. LIMONENE, (+/-)- [Concomitant]
     Active Substance: LIMONENE, (+/-)-
     Indication: Product used for unknown indication
  10. PINENE [Concomitant]
     Indication: Product used for unknown indication
  11. MONTELUKAST [Concomitant]
     Active Substance: MONTELUKAST SODIUM
     Indication: Product used for unknown indication
  12. EUCALYPTOL [Concomitant]
     Active Substance: EUCALYPTOL
     Indication: Product used for unknown indication

REACTIONS (1)
  - Drug ineffective [Unknown]
